FAERS Safety Report 4712969-6 (Version None)
Quarter: 2005Q3

REPORT INFORMATION
  Report Type: 
  Country: None (occurrence: None)
  Receive Date: 20050712
  Receipt Date: 20050712
  Transmission Date: 20060218
  Serious: Yes (Other)
  Sender: FDA-Public Use
  Company Number: None

PATIENT
  Age: 7 Month

DRUGS (3)
  1. MEFLOQUINE [Suspect]
     Indication: MALARIA PROPHYLAXIS
     Dosage: 1/8 TAB WEEK ORAL
     Route: 048
     Dates: start: 20040601, end: 20041102
  2. BACTRIM [Concomitant]
  3. . [Concomitant]

REACTIONS (3)
  - HAEMATOCHEZIA [None]
  - PETECHIAE [None]
  - PLATELET COUNT DECREASED [None]
